FAERS Safety Report 21788927 (Version 1)
Quarter: 2022Q4

REPORT INFORMATION
  Report Type: Spontaneous
  Country: US (occurrence: None)
  Receive Date: 20221227
  Receipt Date: 20221227
  Transmission Date: 20230112
  Serious: Yes (Death)
  Sender: FDA-Public Use
  Company Number: None

PATIENT
  Age: 76 Year
  Sex: Male
  Weight: 88.31 kg

DRUGS (8)
  1. WELIREG [Suspect]
     Active Substance: BELZUTIFAN
     Indication: Lung neoplasm malignant
     Dosage: FREQUENCY : DAILY;?
     Route: 048
  2. ASPIRIN [Concomitant]
     Active Substance: ASPIRIN
  3. FUROSEMIDE [Concomitant]
     Active Substance: FUROSEMIDE
  4. METOPROLOL [Concomitant]
     Active Substance: METOPROLOL
  5. MIRTAZAPINE [Concomitant]
     Active Substance: MIRTAZAPINE
  6. MUCINEX [Concomitant]
     Active Substance: GUAIFENESIN
  7. VITAMIN B12 [Concomitant]
     Active Substance: CYANOCOBALAMIN
  8. ZINC [Concomitant]
     Active Substance: ZINC

REACTIONS (1)
  - Death [None]
